FAERS Safety Report 21919364 (Version 1)
Quarter: 2023Q1

REPORT INFORMATION
  Report Type: Spontaneous
  Country: US (occurrence: US)
  Receive Date: 20230127
  Receipt Date: 20230127
  Transmission Date: 20230417
  Serious: Yes (Other)
  Sender: FDA-Public Use
  Company Number: US-drreddys-LIT/USA/23/0160242

PATIENT
  Age: 71 Year

DRUGS (2)
  1. GEMCITABINE [Suspect]
     Active Substance: GEMCITABINE
     Indication: Pancreatic neuroendocrine tumour metastatic
  2. CAPECITABINE [Suspect]
     Active Substance: CAPECITABINE
     Indication: Pancreatic neuroendocrine tumour metastatic

REACTIONS (3)
  - Gastrointestinal haemorrhage [Unknown]
  - Neutropenic sepsis [Unknown]
  - Product use in unapproved indication [Unknown]
